FAERS Safety Report 23396071 (Version 1)
Quarter: 2024Q1

REPORT INFORMATION
  Report Type: Spontaneous
  Country: DE (occurrence: DE)
  Receive Date: 20240112
  Receipt Date: 20240112
  Transmission Date: 20240410
  Serious: Yes (Death, Hospitalization)
  Sender: FDA-Public Use
  Company Number: DE-TEVA-VS-3143346

PATIENT
  Age: 11 Year

DRUGS (7)
  1. RIBAVIRIN [Suspect]
     Active Substance: RIBAVIRIN
     Indication: Borna virus infection
     Dosage: FOLLOWING DAYS 64 MG/KG ONCE A DAY IN 4 DOSES
     Route: 065
  2. RIBAVIRIN [Suspect]
     Active Substance: RIBAVIRIN
     Indication: Borna virus infection
     Dosage: LOADING DOSE 30 MG/KG ONCE A DAY ON DAY 2
     Route: 065
  3. ACYCLOVIR [Concomitant]
     Active Substance: ACYCLOVIR
     Indication: Evidence based treatment
     Route: 065
  4. DOXYCYCLINE [Concomitant]
     Active Substance: DOXYCYCLINE
     Indication: Evidence based treatment
     Route: 065
  5. FAVIPIRAVIR [Suspect]
     Active Substance: FAVIPIRAVIR
     Indication: Borna virus infection
     Dosage: ON DAY 1: 1600-1600-800MG
     Route: 065
  6. FAVIPIRAVIR [Suspect]
     Active Substance: FAVIPIRAVIR
     Indication: Borna virus infection
     Dosage: ON DAY 1: 1600-1600-800MG
     Route: 065
  7. FAVIPIRAVIR [Suspect]
     Active Substance: FAVIPIRAVIR
     Indication: Borna virus infection
     Route: 065

REACTIONS (1)
  - Drug ineffective [Fatal]
